FAERS Safety Report 9076242 (Version 1)
Quarter: 2013Q1

REPORT INFORMATION
  Report Type: Report from Study
  Country: US (occurrence: US)
  Receive Date: 20130129
  Receipt Date: 20130129
  Transmission Date: 20140127
  Serious: Yes (Other)
  Sender: FDA-Public Use
  Company Number: US-ABBOTT-12P-163-0920186-00

PATIENT
  Age: 58 None
  Sex: Male

DRUGS (2)
  1. HUMIRA 40 MG/ 0.8 ML PRE-FILLED SYRINGE [Suspect]
     Indication: RHEUMATOID ARTHRITIS
     Route: 058
     Dates: start: 20110208
  2. UNKNOWN PSYCH MEDICATION [Concomitant]
     Indication: BIPOLAR DISORDER
     Dates: start: 2005

REACTIONS (4)
  - Gastric cancer [Unknown]
  - Abdominal pain upper [Unknown]
  - Gastric ulcer [Not Recovered/Not Resolved]
  - Helicobacter infection [Recovering/Resolving]
